FAERS Safety Report 26123110 (Version 1)
Quarter: 2025Q4

REPORT INFORMATION
  Report Type: Spontaneous
  Country: US (occurrence: US)
  Receive Date: 20251204
  Receipt Date: 20251204
  Transmission Date: 20260117
  Serious: No
  Sender: SUNOVION
  Company Number: US-SMPA-2025SPA014841

PATIENT
  Age: 71 Year
  Sex: Male

DRUGS (15)
  1. ORGOVYX [Suspect]
     Active Substance: RELUGOLIX
     Indication: Prostate cancer
     Dosage: 360 MG, SINGLE
     Route: 048
     Dates: start: 20250701, end: 20250701
  2. ORGOVYX [Suspect]
     Active Substance: RELUGOLIX
     Dosage: 120 MG, QD
     Route: 048
     Dates: start: 20250702
  3. Black cumin [Concomitant]
     Dosage: UNK (AMAZING HERBS BLACK CUMIN SEED)
  4. BAYER LOW DOSE [Concomitant]
     Active Substance: ASPIRIN
  5. CANNABIS SATIVA SUBSP. INDICA TOP [Concomitant]
     Active Substance: CANNABIS SATIVA SUBSP. INDICA TOP
  6. GINGER [Concomitant]
     Active Substance: GINGER
  7. Modern mushrooms [Concomitant]
     Dosage: UNK (FORCE FACTOR MODERN MUSHROOMS)
  8. Prostate advanced [Concomitant]
     Dosage: UNK (FORCE FACTOR PROSTATE ADVANCED)
  9. IVERMECTIN [Concomitant]
     Active Substance: IVERMECTIN
  10. LOPERAMIDE HYDROCHLORIDE [Concomitant]
     Active Substance: LOPERAMIDE HYDROCHLORIDE
  11. LOSARTAN POTASSIUM AND HYDROCHLOROTHIAZIDE [Concomitant]
     Active Substance: HYDROCHLOROTHIAZIDE\LOSARTAN POTASSIUM
  12. DIETARY SUPPLEMENT\HERBALS\MILK THISTLE [Concomitant]
     Active Substance: MILK THISTLE
  13. Turmeric complex [Concomitant]
  14. HERBALS\SAW PALMETTO [Concomitant]
     Active Substance: HERBALS\SAW PALMETTO
  15. SILDENAFIL CITRATE [Concomitant]
     Active Substance: SILDENAFIL CITRATE

REACTIONS (2)
  - Erectile dysfunction [Unknown]
  - Hot flush [Unknown]
